FAERS Safety Report 18931552 (Version 1)
Quarter: 2021Q1

REPORT INFORMATION
  Report Type: Spontaneous
  Country: US (occurrence: US)
  Receive Date: 20210223
  Receipt Date: 20210223
  Transmission Date: 20210420
  Serious: No
  Sender: FDA-Public Use
  Company Number: US-IGSA-SR10009759

PATIENT
  Age: 54 Year
  Sex: Female
  Weight: 87.5 kg

DRUGS (7)
  1. OMEPRAZOLE. [Concomitant]
     Active Substance: OMEPRAZOLE
  2. SYMBICORT [Concomitant]
     Active Substance: BUDESONIDE\FORMOTEROL FUMARATE DIHYDRATE
  3. PROLASTIN?C LIQUID [Suspect]
     Active Substance: .ALPHA.1-PROTEINASE INHIBITOR HUMAN
     Dosage: 5250 MG, Q.WK.
     Route: 042
     Dates: start: 20180821
  4. VENTOLIN [Concomitant]
     Active Substance: ALBUTEROL SULFATE
  5. PROLASTIN?C LIQUID [Suspect]
     Active Substance: .ALPHA.1-PROTEINASE INHIBITOR HUMAN
     Indication: ALPHA-1 ANTITRYPSIN DEFICIENCY
     Dosage: 5250 MG, Q.WK.
     Route: 042
     Dates: start: 20200114
  6. INCRUSE ELLIPTA [Concomitant]
     Active Substance: UMECLIDINIUM BROMIDE
  7. CHANTIX [Concomitant]
     Active Substance: VARENICLINE TARTRATE

REACTIONS (1)
  - Dizziness [Recovering/Resolving]

NARRATIVE: CASE EVENT DATE: 20200114
